FAERS Safety Report 24528373 (Version 1)
Quarter: 2024Q4

REPORT INFORMATION
  Report Type: Spontaneous
  Country: US (occurrence: None)
  Receive Date: 20241018
  Receipt Date: 20241018
  Transmission Date: 20250115
  Serious: No
  Sender: Public
  Company Number: None

PATIENT
  Age: 93 Year
  Sex: Male
  Weight: 86 kg

DRUGS (2)
  1. TRAMADOL HYDROCHLORIDE [Suspect]
     Active Substance: TRAMADOL HYDROCHLORIDE
     Indication: Pain
  2. GABAPENTIN [Suspect]
     Active Substance: GABAPENTIN

REACTIONS (2)
  - Mental status changes [None]
  - Adverse event [None]

NARRATIVE: CASE EVENT DATE: 20230921
